FAERS Safety Report 7954721-4 (Version None)
Quarter: 2011Q4

REPORT INFORMATION
  Report Type: 
  Country: None (occurrence: None)
  Receive Date: 20111202
  Receipt Date: 20111130
  Transmission Date: 20120403
  Serious: Yes (Other)
  Sender: FDA-Public Use
  Company Number: TW-ROCHE-1018224

PATIENT
  Sex: Female

DRUGS (3)
  1. IMMUNOSUPPRESSANT [Suspect]
     Indication: PROPHYLAXIS AGAINST TRANSPLANT REJECTION
  2. MIRCERA [Suspect]
     Indication: NEPHROGENIC ANAEMIA
     Dates: start: 20110801, end: 20111001
  3. MIRCERA [Suspect]
     Dates: start: 20111001

REACTIONS (1)
  - ANAEMIA [None]
